FAERS Safety Report 17188610 (Version 1)
Quarter: 2019Q4

REPORT INFORMATION
  Report Type: Other
  Country: US (occurrence: US)
  Receive Date: 20191222
  Receipt Date: 20191222
  Transmission Date: 20200122
  Serious: No
  Sender: FDA-Public Use
  Company Number: US-ACORDA-ACO_161941_2019

PATIENT
  Sex: Female

DRUGS (1)
  1. INBRIJA [Suspect]
     Active Substance: LEVODOPA
     Indication: PARKINSON^S DISEASE
     Dosage: TWO CAPSULES (84 MILLIGRAMS TOTAL) UP TO FIVE TIMES PER DAY AS NEEDED

REACTIONS (3)
  - Oropharyngeal discomfort [Unknown]
  - Speech disorder [Unknown]
  - Headache [Unknown]
